FAERS Safety Report 4596993-2 (Version None)
Quarter: 2005Q1

REPORT INFORMATION
  Report Type: 
  Country: None (occurrence: None)
  Receive Date: 20050228
  Receipt Date: 20050218
  Transmission Date: 20050727
  Serious: Yes (Disabling, Other)
  Sender: FDA-Public Use
  Company Number: 2005006035

PATIENT
  Sex: Male
  Weight: 58.9676 kg

DRUGS (8)
  1. NEURONTIN [Suspect]
     Indication: NEUROPATHY PERIPHERAL
     Dosage: 600 MG (300 MG, 2 IN 1 D)
  2. SULFASALAZINE [Concomitant]
  3. LISINOPRIL [Concomitant]
  4. GLIPIZIDE [Concomitant]
  5. PRAVASTATIN SODIUM [Concomitant]
  6. EZETIMIBE (EZETIMIBE) [Concomitant]
  7. SALBUTAMOL (SALBUTAMOL) [Concomitant]
  8. FUROSEMIDE [Concomitant]

REACTIONS (7)
  - CARDIAC DISORDER [None]
  - CONDITION AGGRAVATED [None]
  - DIABETIC NEUROPATHY [None]
  - DRUG INEFFECTIVE [None]
  - EMPHYSEMA [None]
  - OEDEMA PERIPHERAL [None]
  - VISUAL ACUITY REDUCED [None]
